FAERS Safety Report 8886592 (Version 15)
Quarter: 2015Q2

REPORT INFORMATION
  Report Type: Report from Study
  Country: LB (occurrence: LB)
  Receive Date: 20121105
  Receipt Date: 20150518
  Transmission Date: 20150821
  Serious: No
  Sender: FDA-Public Use
  Company Number: PHHY2012LB067098

PATIENT
  Age: 43 Year
  Sex: Female

DRUGS (3)
  1. TASIGNA [Suspect]
     Active Substance: NILOTINIB
     Indication: CHRONIC MYELOID LEUKAEMIA
     Dosage: 600 MG, QD
     Route: 048
     Dates: start: 201204
  2. XYZAL [Concomitant]
     Active Substance: LEVOCETIRIZINE DIHYDROCHLORIDE
     Indication: PRODUCT USED FOR UNKNOWN INDICATION
     Dosage: 1 DF, QD
     Route: 048
  3. DORIXINA//CLONIXIN [Concomitant]
     Indication: PRODUCT USED FOR UNKNOWN INDICATION
     Dosage: UNK UKN, PRN (SOS)
     Route: 048

REACTIONS (19)
  - Hypersensitivity [Not Recovered/Not Resolved]
  - Furuncle [Recovering/Resolving]
  - Lip oedema [Not Recovered/Not Resolved]
  - Headache [Not Recovered/Not Resolved]
  - Erythema [Unknown]
  - Paraesthesia oral [Not Recovered/Not Resolved]
  - Tonsillitis [Recovered/Resolved]
  - Vitamin B12 decreased [Not Recovered/Not Resolved]
  - Pyrexia [Recovering/Resolving]
  - Rash pustular [Recovering/Resolving]
  - Influenza [Unknown]
  - Rash [Not Recovered/Not Resolved]
  - Skin disorder [Recovering/Resolving]
  - Rheumatic disorder [Unknown]
  - Influenza [Recovered/Resolved]
  - Cough [Not Recovered/Not Resolved]
  - Face oedema [Unknown]
  - Tooth abscess [Recovered/Resolved]
  - Abdominal pain upper [Recovering/Resolving]

NARRATIVE: CASE EVENT DATE: 201208
